FAERS Safety Report 21994070 (Version 1)
Quarter: 2023Q1

REPORT INFORMATION
  Report Type: Spontaneous
  Country: US (occurrence: None)
  Receive Date: 20230213
  Receipt Date: 20230213
  Transmission Date: 20230417
  Serious: Yes (Death)
  Sender: FDA-Public Use
  Company Number: None

PATIENT
  Age: 57 Year
  Sex: Female

DRUGS (22)
  1. OFEV [Suspect]
     Active Substance: NINTEDANIB
     Indication: Interstitial lung disease
     Dosage: FREQUENCY : TWICE A DAY;?
     Route: 048
     Dates: start: 20180126, end: 20230111
  2. TADALAFIL [Suspect]
     Active Substance: TADALAFIL
  3. DIGOXIN [Concomitant]
     Active Substance: DIGOXIN
  4. TORSEMIDE [Concomitant]
     Active Substance: TORSEMIDE
  5. ACETAZOLAMIDE [Concomitant]
     Active Substance: ACETAZOLAMIDE
  6. VITAMIN D3 [Concomitant]
     Active Substance: CHOLECALCIFEROL
  7. VITAMIN D2 [Concomitant]
     Active Substance: ERGOCALCIFEROL
  8. ALBUTEROL [Concomitant]
     Active Substance: ALBUTEROL
  9. MOTRIN [Concomitant]
     Active Substance: IBUPROFEN
  10. ALBUTEROL SULFATE [Concomitant]
     Active Substance: ALBUTEROL SULFATE
  11. CETIRIZINE [Concomitant]
     Active Substance: CETIRIZINE HYDROCHLORIDE
  12. TYLENOL [Concomitant]
     Active Substance: ACETAMINOPHEN
  13. HUMULIN N [Concomitant]
     Active Substance: INSULIN HUMAN
  14. TORSEMIDE [Concomitant]
     Active Substance: TORSEMIDE
  15. K-TAB [Concomitant]
     Active Substance: POTASSIUM CHLORIDE
  16. KEPPRA [Concomitant]
     Active Substance: LEVETIRACETAM
  17. Alvesco HFA [Concomitant]
  18. OMEPRAZOLE [Concomitant]
     Active Substance: OMEPRAZOLE
  19. Oxygen intranasal [Concomitant]
  20. Vit B-12 [Concomitant]
  21. ASPIRIN [Concomitant]
     Active Substance: ASPIRIN
  22. EMERGEN-C [Concomitant]
     Active Substance: VITAMINS

REACTIONS (9)
  - Dyspnoea [None]
  - SARS-CoV-2 RNA [None]
  - Leukocytosis [None]
  - Troponin increased [None]
  - Brain natriuretic peptide increased [None]
  - Pneumonia [None]
  - COVID-19 [None]
  - Cardio-respiratory arrest [None]
  - Nonspecific reaction [None]

NARRATIVE: CASE EVENT DATE: 20230111
